FAERS Safety Report 17028050 (Version 2)
Quarter: 2020Q1

REPORT INFORMATION
  Report Type: Spontaneous
  Country: DE (occurrence: DE)
  Receive Date: 20191113
  Receipt Date: 20200304
  Transmission Date: 20200409
  Serious: Yes (Hospitalization)
  Sender: FDA-Public Use
  Company Number: NVSC2019DE031322

PATIENT
  Sex: Female

DRUGS (1)
  1. BETAMETHASONE. [Suspect]
     Active Substance: BETAMETHASONE
     Indication: FOETAL EXPOSURE DURING PREGNANCY
     Dosage: MATERNAL DOSE:UNK (2X12 MG)
     Route: 064

REACTIONS (2)
  - Foetal exposure during pregnancy [Unknown]
  - Premature baby [Unknown]
